FAERS Safety Report 25549312 (Version 1)
Quarter: 2025Q3

REPORT INFORMATION
  Report Type: Spontaneous
  Country: US (occurrence: None)
  Receive Date: 20250713
  Receipt Date: 20250713
  Transmission Date: 20251021
  Serious: Yes (Hospitalization)
  Sender: FDA-CTU
  Company Number: None

PATIENT
  Sex: Female

DRUGS (1)
  1. SILDENAFIL [Suspect]
     Active Substance: SILDENAFIL
     Dosage: FREQUENCY : EVERY 8 HOURS;?OTHER ROUTE : VIA G-TUBE;?
     Route: 048
     Dates: start: 20241023

REACTIONS (1)
  - Hospitalisation [None]
